FAERS Safety Report 20333912 (Version 1)
Quarter: 2022Q1

REPORT INFORMATION
  Report Type: Report from Study
  Country: IT (occurrence: IT)
  Receive Date: 20220113
  Receipt Date: 20220113
  Transmission Date: 20220423
  Serious: Yes (Hospitalization)
  Sender: FDA-Public Use
  Company Number: None

PATIENT
  Age: 85 Year
  Sex: Female

DRUGS (9)
  1. TRAMADOL [Suspect]
     Active Substance: TRAMADOL
     Indication: Neuralgia
     Dosage: 45 GTT
  2. CARDURA [Concomitant]
     Active Substance: DOXAZOSIN MESYLATE
     Dosage: STRENGTH : 4 MG
  3. DILTIAZEM HYDROCHLORIDE [Concomitant]
     Active Substance: DILTIAZEM HYDROCHLORIDE
  4. DULOXETINE [Concomitant]
     Active Substance: DULOXETINE
     Dosage: 60 MG
  5. RAMIPRIL [Concomitant]
     Active Substance: RAMIPRIL
     Dosage: STRENGTH : 10 MG
  6. HALCION [Concomitant]
     Active Substance: TRIAZOLAM
  7. GABAPENTIN [Concomitant]
     Active Substance: GABAPENTIN
     Dosage: 900 MG
  8. PANTOPRAZOLE [Concomitant]
     Active Substance: PANTOPRAZOLE
     Dosage: 40 MG
  9. ASPIRIN [Concomitant]
     Active Substance: ASPIRIN
     Dosage: 100 MG

REACTIONS (1)
  - Respiratory failure [Not Recovered/Not Resolved]

NARRATIVE: CASE EVENT DATE: 20211218
